FAERS Safety Report 5758123-0 (Version None)
Quarter: 2008Q2

REPORT INFORMATION
  Report Type: 
  Country: None (occurrence: None)
  Receive Date: 20080603
  Receipt Date: 20080603
  Transmission Date: 20081010
  Serious: Yes (Other)
  Sender: FDA-Public Use
  Company Number: None

PATIENT
  Sex: Female

DRUGS (2)
  1. ULTRAVIST 300 [Suspect]
     Indication: RENAL DISORDER
     Dosage: 20ML OTO
     Dates: start: 20080518, end: 20080518
  2. ULTRAVIST 300 [Suspect]
     Indication: VEIN DISORDER
     Dosage: 20ML OTO
     Dates: start: 20080518, end: 20080518

REACTIONS (7)
  - EYELID OEDEMA [None]
  - LIP OEDEMA [None]
  - LOCALISED OEDEMA [None]
  - PRURITUS [None]
  - RASH MACULAR [None]
  - SWELLING FACE [None]
  - URTICARIA [None]
